FAERS Safety Report 10311842 (Version 1)
Quarter: 2014Q3

REPORT INFORMATION
  Report Type: Spontaneous
  Country: US (occurrence: US)
  Receive Date: 20140717
  Receipt Date: 20140717
  Transmission Date: 20150326
  Serious: Yes (Disabling, Congenital Anomaly, Other)
  Sender: FDA-Public Use
  Company Number: US-ABBVIE-14P-163-1257935-00

PATIENT
  Sex: Male

DRUGS (2)
  1. DEPAKOTE ER [Suspect]
     Active Substance: DIVALPROEX SODIUM
     Indication: MATERNAL EXPOSURE TIMING UNSPECIFIED
     Route: 064
  2. DEPAKOTE [Suspect]
     Active Substance: DIVALPROEX SODIUM
     Indication: MATERNAL EXPOSURE TIMING UNSPECIFIED
     Route: 064

REACTIONS (26)
  - Economic problem [Unknown]
  - Activities of daily living impaired [Unknown]
  - Mental disorder [Unknown]
  - Physical disability [Unknown]
  - Learning disability [Unknown]
  - Foetal exposure during pregnancy [Unknown]
  - Anhedonia [Unknown]
  - Abnormal behaviour [Unknown]
  - Language disorder [Unknown]
  - Double ureter [Unknown]
  - Sensory integrative dysfunction [Unknown]
  - Impaired work ability [Unknown]
  - Life expectancy shortened [Unknown]
  - Congenital genital malformation [Unknown]
  - Pain [Unknown]
  - Developmental delay [Unknown]
  - Cognitive disorder [Unknown]
  - Tension [Unknown]
  - Loss of employment [Unknown]
  - Deformity [Unknown]
  - Speech disorder developmental [Unknown]
  - Multiple injuries [Unknown]
  - Disturbance in social behaviour [Unknown]
  - Hypokinesia [Unknown]
  - Social problem [Unknown]
  - Autism [Unknown]
